FAERS Safety Report 10246546 (Version 1)
Quarter: 2014Q2

REPORT INFORMATION
  Report Type: Spontaneous
  Country: US (occurrence: US)
  Receive Date: 20140619
  Receipt Date: 20140619
  Transmission Date: 20141212
  Serious: Yes (Other)
  Sender: FDA-Public Use
  Company Number: US-BAYER-2014-091678

PATIENT
  Age: 45 Year
  Sex: Female
  Weight: 77.55 kg

DRUGS (5)
  1. YASMIN [Suspect]
  2. CIPRO [Concomitant]
     Indication: INFECTION
     Dosage: 500 MG, BID
  3. LOVENOX [Concomitant]
     Indication: DEEP VEIN THROMBOSIS
  4. COUMADIN [Concomitant]
     Indication: DEEP VEIN THROMBOSIS
  5. WARFARIN [Concomitant]
     Indication: DEEP VEIN THROMBOSIS

REACTIONS (1)
  - Deep vein thrombosis [Recovered/Resolved]
